FAERS Safety Report 19184201 (Version 2)
Quarter: 2021Q2

REPORT INFORMATION
  Report Type: Spontaneous
  Country: DE (occurrence: DE)
  Receive Date: 20210427
  Receipt Date: 20210429
  Transmission Date: 20210717
  Serious: Yes (Hospitalization)
  Sender: FDA-Public Use
  Company Number: DE-PFIZER INC-2015383462

PATIENT
  Age: 91 Year
  Sex: Female
  Weight: 65 kg

DRUGS (8)
  1. ASS PROTECT (ACETYLSALICYLIC ACID) [Suspect]
     Active Substance: ASPIRIN
     Indication: PROPHYLAXIS
     Dosage: 100 MG, FOR YEARS
  2. ASS PROTECT (ACETYLSALICYLIC ACID) [Suspect]
     Active Substance: ASPIRIN
     Dosage: 30 MG, DAILY
     Dates: start: 201512
  3. FRAGMIN P FORTE [Suspect]
     Active Substance: DALTEPARIN SODIUM
     Dosage: UNK
  4. PANTOZOL [Concomitant]
     Active Substance: PANTOPRAZOLE SODIUM
     Indication: PROPHYLAXIS
     Dosage: 20 MG, FOR YEARS
  5. METOPROLOL SUCCINATE. [Concomitant]
     Active Substance: METOPROLOL SUCCINATE
     Indication: HYPERTENSION
  6. SIMVASTATIN. [Concomitant]
     Active Substance: SIMVASTATIN
     Indication: HYPERCHOLESTEROLAEMIA
     Dosage: 40 MG, FOR YEARS
  7. FRAGMIN P FORTE [Suspect]
     Active Substance: DALTEPARIN SODIUM
     Indication: THROMBOSIS PROPHYLAXIS
     Dosage: 5000 IU, 1X/DAY
     Route: 058
     Dates: start: 20150919, end: 20151031
  8. CLOZAPIN [Concomitant]
     Active Substance: CLOZAPINE
     Dosage: 25 MG AT 0.5?0.25?1 TABLET FOR YEARS

REACTIONS (1)
  - Cerebral calcification [Recovered/Resolved]

NARRATIVE: CASE EVENT DATE: 20151031
